FAERS Safety Report 7779719-0 (Version None)
Quarter: 2011Q3

REPORT INFORMATION
  Report Type: 
  Country: None (occurrence: None)
  Receive Date: 20110927
  Receipt Date: 20110921
  Transmission Date: 20111222
  Serious: Yes (Other)
  Sender: FDA-Public Use
  Company Number: US-PFIZER INC-2011225012

PATIENT
  Sex: Female
  Weight: 63.492 kg

DRUGS (2)
  1. TOVIAZ [Suspect]
     Indication: POLLAKIURIA
     Dosage: 40 MG, UNK
     Route: 048
     Dates: start: 20110920
  2. ENALAPRIL [Concomitant]
     Dosage: UNK

REACTIONS (1)
  - NOCTURIA [None]
